FAERS Safety Report 8623913-3 (Version None)
Quarter: 2012Q3

REPORT INFORMATION
  Report Type: 
  Country: None (occurrence: None)
  Receive Date: 20120827
  Receipt Date: 20120821
  Transmission Date: 20120928
  Serious: Yes (Other)
  Sender: FDA-Public Use
  Company Number: PHEH2012US016392

PATIENT
  Sex: Female

DRUGS (3)
  1. GILENYA [Suspect]
     Indication: MULTIPLE SCLEROSIS
     Dosage: 0.5 MG, QD
     Route: 048
     Dates: start: 20110818
  2. IBUPROFEN [Concomitant]
     Indication: PAIN
  3. LUCENTA [Concomitant]
     Indication: PAIN
     Dosage: 50 MG, UNK

REACTIONS (16)
  - FOLLICULITIS [None]
  - GINGIVAL PAIN [None]
  - EYE PAIN [None]
  - INFECTION [None]
  - SINUSITIS [None]
  - SKIN INJURY [None]
  - GINGIVAL ERYTHEMA [None]
  - BACK PAIN [None]
  - COUGH [None]
  - GINGIVAL INFECTION [None]
  - GINGIVAL SWELLING [None]
  - EYE INFECTION [None]
  - HEADACHE [None]
  - RHINORRHOEA [None]
  - INGROWN HAIR [None]
  - SNEEZING [None]
